FAERS Safety Report 11029509 (Version 1)
Quarter: 2015Q2

REPORT INFORMATION
  Report Type: Spontaneous
  Country: US (occurrence: None)
  Receive Date: 20150413
  Receipt Date: 20150413
  Transmission Date: 20150821
  Serious: Yes (Death)
  Sender: FDA-Public Use
  Company Number: 2015GR_BP000638

PATIENT
  Age: 84 Year
  Sex: Male

DRUGS (12)
  1. QUETIAPINE [Concomitant]
     Active Substance: QUETIAPINE
  2. HYDROCHLOROTHIAZIDE, TRIAMTERENE [Concomitant]
  3. FINASTERIDE. [Suspect]
     Active Substance: FINASTERIDE
     Indication: PRODUCT USED FOR UNKNOWN INDICATION
  4. MEMANTINE [Concomitant]
     Active Substance: MEMANTINE
  5. PREDNISONE. [Concomitant]
     Active Substance: PREDNISONE
  6. ACETYLSALICYLIC ACID [Concomitant]
     Active Substance: ASPIRIN
  7. CELECOXIB. [Concomitant]
     Active Substance: CELECOXIB
  8. ALLOPURINOL. [Concomitant]
     Active Substance: ALLOPURINOL
  9. SULFASALAZINE. [Concomitant]
     Active Substance: SULFASALAZINE
  10. RANITIDINE [Concomitant]
     Active Substance: RANITIDINE\RANITIDINE HYDROCHLORIDE
  11. DOXAZOSIN [Concomitant]
     Active Substance: DOXAZOSIN\DOXAZOSIN MESYLATE
  12. ASCORBIC ACID. [Concomitant]
     Active Substance: ASCORBIC ACID

REACTIONS (3)
  - Generalised tonic-clonic seizure [None]
  - Seizure [None]
  - Cerebral ischaemia [None]
